FAERS Safety Report 9026662 (Version 1)
Quarter: 2013Q1

REPORT INFORMATION
  Report Type: Spontaneous
  Country: TW (occurrence: TW)
  Receive Date: 20130123
  Receipt Date: 20130123
  Transmission Date: 20140127
  Serious: Yes (Other)
  Sender: FDA-Public Use
  Company Number: TW-ELI_LILLY_AND_COMPANY-TW201301006021

PATIENT
  Age: 62 Year
  Sex: Female

DRUGS (3)
  1. FLUOXETINE HYDROCHLORIDE [Suspect]
     Indication: DEPRESSION
     Dosage: 40 MG, QD
  2. FLUOXETINE HYDROCHLORIDE [Interacting]
     Dosage: 60 MG, QD
  3. PROPRANOLOL [Concomitant]
     Indication: HYPERTENSION
     Dosage: 30 MG, QD

REACTIONS (8)
  - Hypomania [Recovered/Resolved]
  - Drug interaction [Recovered/Resolved]
  - Depression [Recovered/Resolved]
  - Suicidal ideation [Recovered/Resolved]
  - Death of relative [None]
  - Grief reaction [None]
  - Feeling guilty [None]
  - Drug effect decreased [None]
